FAERS Safety Report 8761342 (Version 5)
Quarter: 2013Q1

REPORT INFORMATION
  Report Type: Spontaneous
  Country: US (occurrence: US)
  Receive Date: 20120830
  Receipt Date: 20130107
  Transmission Date: 20140127
  Serious: Yes (Hospitalization, Other)
  Sender: FDA-Public Use
  Company Number: US-009507513-1203USA00871

PATIENT
  Sex: 0

DRUGS (5)
  1. FOSAMAX [Suspect]
     Indication: OSTEOPOROSIS
     Dosage: 40 MG QW
     Route: 048
     Dates: start: 1997, end: 200012
  2. FOSAMAX [Suspect]
     Dosage: 60 MG, QW
     Route: 048
     Dates: start: 200009
  3. ACTONEL [Suspect]
     Indication: OSTEOPOROSIS
     Dosage: 30 MG QW
     Route: 048
     Dates: start: 2001, end: 2011
  4. VITAMINS (UNSPECIFIED) [Concomitant]
     Dosage: 1 DF, QD
     Dates: start: 1938
  5. CALCIUM (UNSPECIFIED) [Concomitant]
     Dosage: 1 DF, QD
     Dates: start: 1997

REACTIONS (50)
  - Venous insufficiency [Not Recovered/Not Resolved]
  - Sciatic nerve neuropathy [Unknown]
  - Arthralgia [Not Recovered/Not Resolved]
  - Constipation [Unknown]
  - Drug hypersensitivity [Unknown]
  - Drug hypersensitivity [Unknown]
  - Gastrooesophageal reflux disease [Unknown]
  - Femur fracture [Unknown]
  - Intramedullary rod insertion [Unknown]
  - Transfusion [Recovered/Resolved]
  - Blood creatinine increased [Unknown]
  - Fall [Unknown]
  - Renal failure chronic [Not Recovered/Not Resolved]
  - Fracture nonunion [Unknown]
  - Open reduction of fracture [Unknown]
  - Peroneal nerve palsy [Not Recovered/Not Resolved]
  - Femur fracture [Recovering/Resolving]
  - Inappropriate schedule of drug administration [Unknown]
  - Low turnover osteopathy [Unknown]
  - Transfusion [Recovered/Resolved]
  - Wrist fracture [Unknown]
  - Fall [Unknown]
  - Anxiety [Not Recovered/Not Resolved]
  - Knee arthroplasty [Unknown]
  - Adenotonsillectomy [Unknown]
  - Blood cholesterol increased [Not Recovered/Not Resolved]
  - Type 2 diabetes mellitus [Not Recovered/Not Resolved]
  - Calcium deficiency [Unknown]
  - Hypothyroidism [Unknown]
  - Anaemia [Recovered/Resolved]
  - Bronchitis [Unknown]
  - Dyspnoea exertional [Unknown]
  - Arthritis [Unknown]
  - Cardiac murmur [Unknown]
  - Hyperlipidaemia [Unknown]
  - Toxicity to various agents [Unknown]
  - Wrong technique in drug usage process [Unknown]
  - Incorrect dose administered [Unknown]
  - Oral surgery [Unknown]
  - Wrist surgery [Unknown]
  - Renal tubular necrosis [Recovering/Resolving]
  - Rectal fissure [Unknown]
  - Osteoarthritis [Not Recovered/Not Resolved]
  - Bursitis [Unknown]
  - Melanosis coli [Unknown]
  - Haemorrhoids [Unknown]
  - Iliotibial band syndrome [Unknown]
  - Acute sinusitis [Unknown]
  - Cerumen impaction [Recovered/Resolved]
  - Aortic stenosis [Unknown]
